FAERS Safety Report 4892877-0 (Version None)
Quarter: 2005Q4

REPORT INFORMATION
  Report Type: 
  Country: None (occurrence: None)
  Receive Date: 20051220
  Receipt Date: 20050923
  Transmission Date: 20060501
  Serious: Yes (Other)
  Sender: FDA-Public Use
  Company Number: 419016

PATIENT
  Age: 64 Year
  Sex: Female
  Weight: 95.3 kg

DRUGS (5)
  1. BONIVA [Suspect]
     Indication: OSTEOPOROSIS
     Dosage: 150 MG 1 PER MONTH ORAL
     Route: 048
     Dates: start: 20050918
  2. PROTONIX [Concomitant]
  3. CLARINEX (DESLORATADINE/LORATADINE/PSEUDOEPHEDRINE HYDROCHLORIDE) [Concomitant]
  4. MIRALAX [Concomitant]
  5. INHALER NOS (GENERIC ) [Concomitant]

REACTIONS (2)
  - CYSTITIS [None]
  - DYSURIA [None]
